FAERS Safety Report 8522170-6 (Version None)
Quarter: 2012Q3

REPORT INFORMATION
  Report Type: 
  Country: None (occurrence: None)
  Receive Date: 20120709
  Receipt Date: 20120619
  Transmission Date: 20120928
  Serious: Yes (Hospitalization, Disabling, Other)
  Sender: FDA-Public Use
  Company Number: 2011-309

PATIENT
  Age: 43 Year
  Sex: Male
  Weight: 81 kg

DRUGS (4)
  1. PRIALT [Suspect]
     Indication: NEURALGIA
     Dosage: 0.05 UG, ONCE/HOUR, INTRATHECAL ; 0.03 UG, ONCE/HOUR, INTRATHECAL ; 0.2 G, ONCE/HOUR, INTRATHECAL
     Route: 037
     Dates: start: 20110518, end: 20110601
  2. PRIALT [Suspect]
     Indication: NEURALGIA
     Dosage: 0.05 UG, ONCE/HOUR, INTRATHECAL ; 0.03 UG, ONCE/HOUR, INTRATHECAL ; 0.2 G, ONCE/HOUR, INTRATHECAL
     Route: 037
     Dates: start: 20110601, end: 20120126
  3. PRIALT [Suspect]
     Indication: NEURALGIA
     Dosage: 0.05 UG, ONCE/HOUR, INTRATHECAL ; 0.03 UG, ONCE/HOUR, INTRATHECAL ; 0.2 G, ONCE/HOUR, INTRATHECAL
     Route: 037
     Dates: start: 20120126
  4. TEGRETOL [Concomitant]

REACTIONS (14)
  - SKIN EXFOLIATION [None]
  - OVERDOSE [None]
  - ANXIETY [None]
  - BURNING SENSATION [None]
  - VISUAL IMPAIRMENT [None]
  - PERSECUTORY DELUSION [None]
  - HALLUCINATION [None]
  - AGITATION [None]
  - NEPHROLITHIASIS [None]
  - DRUG WITHDRAWAL SYNDROME [None]
  - DELIRIUM [None]
  - PARANOIA [None]
  - TREMOR [None]
  - ASTHENIA [None]
